FAERS Safety Report 19481856 (Version 1)
Quarter: 2021Q3

REPORT INFORMATION
  Report Type: Spontaneous
  Country: DE (occurrence: DE)
  Receive Date: 20210701
  Receipt Date: 20210701
  Transmission Date: 20211014
  Serious: Yes (Life-Threatening)
  Sender: FDA-Public Use
  Company Number: DE-ACCORD-230103

PATIENT
  Age: 71 Year
  Sex: Female

DRUGS (6)
  1. SIMVASTATIN. [Concomitant]
     Active Substance: SIMVASTATIN
  2. CANDESARTAN. [Concomitant]
     Active Substance: CANDESARTAN
  3. NEBIVOLOL. [Concomitant]
     Active Substance: NEBIVOLOL
  4. LEVOTHYROXINE. [Concomitant]
     Active Substance: LEVOTHYROXINE
  5. CLOPIDOGREL [Suspect]
     Active Substance: CLOPIDOGREL BISULFATE
     Indication: MITRAL VALVE REPLACEMENT
     Route: 048
  6. PHENPROCOUMON [Suspect]
     Active Substance: PHENPROCOUMON
     Indication: MITRAL VALVE REPLACEMENT
     Route: 048

REACTIONS (5)
  - Intraventricular haemorrhage [Unknown]
  - Hemiparesis [Unknown]
  - Aphasia [Unknown]
  - Cerebral haemorrhage [Unknown]
  - Coma [Unknown]

NARRATIVE: CASE EVENT DATE: 20210128
